FAERS Safety Report 18222223 (Version 1)
Quarter: 2020Q3

REPORT INFORMATION
  Report Type: Spontaneous
  Country: US (occurrence: US)
  Receive Date: 20200902
  Receipt Date: 20200902
  Transmission Date: 20201103
  Serious: Yes (Disabling)
  Sender: FDA-Public Use
  Company Number: None

PATIENT
  Age: 53 Day
  Sex: Female
  Weight: 69.75 kg

DRUGS (1)
  1. CYMBALTA [Suspect]
     Active Substance: DULOXETINE HYDROCHLORIDE
     Indication: AUTOIMMUNE NEUROPATHY
     Route: 048

REACTIONS (3)
  - Mental impairment [None]
  - General physical health deterioration [None]
  - Withdrawal syndrome [None]

NARRATIVE: CASE EVENT DATE: 20200815
